FAERS Safety Report 10040825 (Version 2)
Quarter: 2014Q2

REPORT INFORMATION
  Report Type: Report from Study
  Country: JP (occurrence: JP)
  Receive Date: 20140327
  Receipt Date: 20140411
  Transmission Date: 20141212
  Serious: No
  Sender: FDA-Public Use
  Company Number: JP-JNJFOC-20140312449

PATIENT
  Age: 71 Year
  Sex: Male

DRUGS (5)
  1. USTEKINUMAB [Suspect]
     Indication: PSORIASIS
     Route: 058
     Dates: start: 20131125
  2. XYZAL [Suspect]
     Indication: PSORIASIS
     Route: 048
  3. EQUA (VILDAGLIPTIN) [Suspect]
     Indication: DIABETES MELLITUS
     Route: 048
  4. ANTEBATE [Concomitant]
     Indication: PSORIASIS
     Route: 061
  5. OXAROL [Concomitant]
     Indication: PSORIASIS
     Route: 061

REACTIONS (1)
  - Hepatic function abnormal [Not Recovered/Not Resolved]
